FAERS Safety Report 8792627 (Version 1)
Quarter: 2012Q4

REPORT INFORMATION
  Report Type: 
  Country: US (occurrence: US)
  Receive Date: 20120918
  Receipt Date: 20120918
  Transmission Date: 20130627
  Serious: Yes (Other)
  Sender: FDA-Public Use
  Company Number: US-BAYER-2012-096122

PATIENT
  Sex: Female

DRUGS (9)
  1. CLIMARA [Suspect]
     Route: 062
  2. PREMPRO [Suspect]
  3. PREMARIN [Suspect]
  4. PROVERA [Suspect]
  5. ESTRADERM [Suspect]
  6. CYCRIN [Suspect]
  7. MEDROXYPROGESTERONE ACETATE [Suspect]
  8. OGEN [Suspect]
  9. ESTROGEN [Suspect]

REACTIONS (1)
  - Breast cancer female [None]
